FAERS Safety Report 4874807-0 (Version None)
Quarter: 2006Q1

REPORT INFORMATION
  Report Type: 
  Country: None (occurrence: None)
  Receive Date: 20060104
  Receipt Date: 20051222
  Transmission Date: 20060701
  Serious: Yes (Other)
  Sender: FDA-Public Use
  Company Number: 2005172106

PATIENT
  Age: 38 Year
  Sex: Female

DRUGS (2)
  1. LYRICA [Suspect]
     Indication: VAGINAL PAIN
     Dosage: ORAL
     Route: 048
     Dates: start: 20051024
  2. DOTHIEPIN HYDROCHLORIDE [Suspect]
     Indication: VAGINAL PAIN
     Dosage: ORAL
     Route: 048
     Dates: start: 20020101

REACTIONS (1)
  - EXTRASYSTOLES [None]
